FAERS Safety Report 4715701-5 (Version None)
Quarter: 2005Q2

REPORT INFORMATION
  Report Type: 
  Country: None (occurrence: None)
  Receive Date: 20050630
  Receipt Date: 20050523
  Transmission Date: 20051028
  Serious: No
  Sender: FDA-Public Use
  Company Number: 214719

PATIENT
  Age: 56 Year
  Sex: Male

DRUGS (3)
  1. AVASTIN [Suspect]
     Indication: GASTRIC CANCER
     Route: 065
     Dates: start: 20050301
  2. CISPLATIN [Concomitant]
  3. GEMCITABINE (GEMCITABINE HYDROCHLORIDE) [Concomitant]

REACTIONS (1)
  - HYPONATRAEMIA [None]
